FAERS Safety Report 19206458 (Version 1)
Quarter: 2021Q2

REPORT INFORMATION
  Report Type: Spontaneous
  Country: US (occurrence: US)
  Receive Date: 20210501
  Receipt Date: 20210501
  Transmission Date: 20210717
  Serious: Yes (Hospitalization)
  Sender: FDA-Public Use
  Company Number: None

PATIENT
  Age: 45 Year
  Sex: Male
  Weight: 59 kg

DRUGS (3)
  1. TEMOZOLOMIDE. [Suspect]
     Active Substance: TEMOZOLOMIDE
     Dates: end: 20180418
  2. TEMODAR [Concomitant]
     Active Substance: TEMOZOLOMIDE
  3. BEVACIZUMAB. [Concomitant]
     Active Substance: BEVACIZUMAB

REACTIONS (3)
  - Seizure [None]
  - Aphasia [None]
  - Neoplasm progression [None]

NARRATIVE: CASE EVENT DATE: 20210423
